FAERS Safety Report 18389867 (Version 1)
Quarter: 2020Q4

REPORT INFORMATION
  Report Type: Spontaneous
  Country: FR (occurrence: FR)
  Receive Date: 20201016
  Receipt Date: 20201016
  Transmission Date: 20210114
  Serious: Yes (Hospitalization, Other)
  Sender: FDA-Public Use
  Company Number: FR-AUROBINDO-AUR-APL-2020-052033

PATIENT
  Age: 15 Year
  Sex: Female
  Weight: 66 kg

DRUGS (2)
  1. ATARAX [Concomitant]
     Active Substance: HYDROXYZINE HYDROCHLORIDE
     Indication: INITIAL INSOMNIA
     Dosage: 25 MICROGRAM, ONCE A DAY
     Route: 048
     Dates: start: 20200201
  2. PARACETAMOL [Suspect]
     Active Substance: ACETAMINOPHEN
     Indication: SUICIDE ATTEMPT
     Dosage: 22 GRAM
     Route: 048
     Dates: start: 20200315, end: 20200315

REACTIONS (4)
  - Nausea [Recovered/Resolved]
  - Prothrombin time ratio decreased [Recovered/Resolved]
  - Poisoning deliberate [Recovered/Resolved]
  - Vomiting [Recovered/Resolved]

NARRATIVE: CASE EVENT DATE: 20200315
